FAERS Safety Report 8398610-2 (Version None)
Quarter: 2012Q2

REPORT INFORMATION
  Report Type: 
  Country: None (occurrence: None)
  Receive Date: 20120524
  Receipt Date: 20120515
  Transmission Date: 20120825
  Serious: No
  Sender: FDA-Public Use
  Company Number: 2012SP024637

PATIENT
  Sex: Female

DRUGS (3)
  1. RIBAVIRIN [Suspect]
     Indication: HEPATITIS C
     Dates: start: 20120330
  2. VICTRELIS [Suspect]
     Indication: HEPATITIS C
     Dates: start: 20120427
  3. PEGINTERFERON ALFA-2B [Suspect]
     Indication: HEPATITIS C
     Dates: start: 20120330

REACTIONS (4)
  - HEADACHE [None]
  - DECREASED APPETITE [None]
  - STOMATITIS [None]
  - FATIGUE [None]
